FAERS Safety Report 11918883 (Version 2)
Quarter: 2016Q3

REPORT INFORMATION
  Report Type: Spontaneous
  Country: US (occurrence: US)
  Receive Date: 20160115
  Receipt Date: 20160907
  Transmission Date: 20161109
  Serious: Yes (Other)
  Sender: FDA-Public Use
  Company Number: US-JNJFOC-20151205102

PATIENT
  Age: 51 Year
  Sex: Female
  Weight: 44 kg

DRUGS (25)
  1. LEVAQUIN [Suspect]
     Active Substance: LEVOFLOXACIN
     Indication: PAIN
     Route: 048
     Dates: start: 20080916, end: 20080926
  2. PARACETAMOL [Concomitant]
     Active Substance: ACETAMINOPHEN
     Indication: ANALGESIC THERAPY
     Route: 065
     Dates: start: 2006
  3. LEVAQUIN [Suspect]
     Active Substance: LEVOFLOXACIN
     Indication: MYALGIA
     Route: 048
     Dates: start: 20040804, end: 20040811
  4. LEVAQUIN [Suspect]
     Active Substance: LEVOFLOXACIN
     Indication: SINUSITIS
     Route: 048
     Dates: start: 20040804, end: 20040811
  5. MOXIFLOXACIN. [Suspect]
     Active Substance: MOXIFLOXACIN
     Indication: SINUSITIS
     Route: 048
     Dates: start: 20080818, end: 20080828
  6. CYMBALTA [Concomitant]
     Active Substance: DULOXETINE HYDROCHLORIDE
     Indication: DEPRESSION
     Route: 065
     Dates: start: 2007
  7. XANAX [Concomitant]
     Active Substance: ALPRAZOLAM
     Indication: ANXIETY
     Route: 065
     Dates: start: 2007
  8. FLONASE [Concomitant]
     Active Substance: FLUTICASONE PROPIONATE
     Indication: SINUS DISORDER
     Route: 065
  9. LEVAQUIN [Suspect]
     Active Substance: LEVOFLOXACIN
     Indication: MYALGIA
     Route: 048
     Dates: start: 20060530, end: 20060609
  10. GABAPENTIN. [Concomitant]
     Active Substance: GABAPENTIN
     Indication: MIGRAINE
     Route: 065
     Dates: start: 2006
  11. LEVAQUIN [Suspect]
     Active Substance: LEVOFLOXACIN
     Indication: PAIN
     Route: 048
     Dates: start: 20040804, end: 20040811
  12. LEVAQUIN [Suspect]
     Active Substance: LEVOFLOXACIN
     Indication: MYALGIA
     Route: 048
     Dates: start: 20080916, end: 20080926
  13. LEVAQUIN [Suspect]
     Active Substance: LEVOFLOXACIN
     Indication: SINUSITIS
     Route: 048
     Dates: start: 20060606, end: 20060613
  14. MOXIFLOXACIN. [Suspect]
     Active Substance: MOXIFLOXACIN
     Indication: SINUSITIS
     Route: 048
     Dates: start: 20050203, end: 20050213
  15. TEQUIN [Suspect]
     Active Substance: GATIFLOXACIN
     Indication: SINUSITIS
     Route: 065
     Dates: start: 20050203, end: 20050213
  16. HYDROCODONE [Concomitant]
     Active Substance: HYDROCODONE
     Indication: ANALGESIC THERAPY
     Route: 065
     Dates: start: 2007
  17. LEVAQUIN [Suspect]
     Active Substance: LEVOFLOXACIN
     Indication: PAIN
     Route: 048
     Dates: start: 20060530, end: 20060609
  18. LEVAQUIN [Suspect]
     Active Substance: LEVOFLOXACIN
     Indication: SINUSITIS
     Route: 048
     Dates: start: 20080916, end: 20080926
  19. CYMBALTA [Concomitant]
     Active Substance: DULOXETINE HYDROCHLORIDE
     Indication: ANXIETY
     Route: 065
     Dates: start: 2007
  20. GABAPENTIN. [Concomitant]
     Active Substance: GABAPENTIN
     Indication: NEURALGIA
     Route: 065
     Dates: start: 2006
  21. LEVAQUIN [Suspect]
     Active Substance: LEVOFLOXACIN
     Indication: PAIN
     Route: 048
     Dates: start: 20060606, end: 20060613
  22. LEVAQUIN [Suspect]
     Active Substance: LEVOFLOXACIN
     Indication: MYALGIA
     Route: 048
     Dates: start: 20060606, end: 20060613
  23. LEVAQUIN [Suspect]
     Active Substance: LEVOFLOXACIN
     Indication: SINUSITIS
     Route: 048
     Dates: start: 20060530, end: 20060609
  24. MOXIFLOXACIN. [Suspect]
     Active Substance: MOXIFLOXACIN
     Indication: SINUSITIS
     Route: 048
     Dates: start: 20050302, end: 20050316
  25. CIPROFLOXACIN. [Suspect]
     Active Substance: CIPROFLOXACIN
     Indication: SACROILIITIS
     Route: 065
     Dates: start: 20070724, end: 20070813

REACTIONS (1)
  - Neuropathy peripheral [Not Recovered/Not Resolved]

NARRATIVE: CASE EVENT DATE: 200809
